FAERS Safety Report 7760769-5 (Version None)
Quarter: 2011Q3

REPORT INFORMATION
  Report Type: 
  Country: None (occurrence: None)
  Receive Date: 20110919
  Receipt Date: 20110914
  Transmission Date: 20111222
  Serious: Yes (Hospitalization)
  Sender: FDA-Public Use
  Company Number: US-GILEAD-2011-0039587

PATIENT
  Sex: Female

DRUGS (11)
  1. LOVASTATIN [Concomitant]
  2. DUONEB [Concomitant]
  3. NEXIUM [Concomitant]
  4. LASIX [Concomitant]
  5. TYLENOL-500 [Concomitant]
  6. POTASSIUM CHLORIDE [Concomitant]
  7. VENTAVIS [Concomitant]
  8. TESSALON [Concomitant]
  9. LETAIRIS [Suspect]
     Indication: PULMONARY ARTERIAL HYPERTENSION
     Route: 048
     Dates: start: 20081009
  10. REVATIO [Concomitant]
  11. OXYGEN [Concomitant]

REACTIONS (1)
  - CARDIAC FAILURE CONGESTIVE [None]
